FAERS Safety Report 4298893-4 (Version None)
Quarter: 2004Q1

REPORT INFORMATION
  Report Type: 
  Country: None (occurrence: None)
  Receive Date: 20040126
  Receipt Date: 20031020
  Transmission Date: 20041129
  Serious: No
  Sender: FDA-Public Use
  Company Number: USA031050300

PATIENT
  Age: 49 Year
  Sex: Female
  Weight: 122 kg

DRUGS (1)
  1. STRATTERA [Suspect]
     Dosage: 40 MG/DAY

REACTIONS (6)
  - DIZZINESS [None]
  - HEAD DISCOMFORT [None]
  - HEART RATE INCREASED [None]
  - NAUSEA [None]
  - PARAESTHESIA [None]
  - VERTIGO [None]
